FAERS Safety Report 25298179 (Version 2)
Quarter: 2025Q2

REPORT INFORMATION
  Report Type: Report from Study
  Country: US (occurrence: US)
  Receive Date: 20250512
  Receipt Date: 20250516
  Transmission Date: 20250717
  Serious: No
  Sender: SANDOZ
  Company Number: US-SANDOZ-SDZ2024US101633

PATIENT
  Age: 4 Year
  Sex: Male

DRUGS (4)
  1. OMNITROPE [Suspect]
     Active Substance: SOMATROPIN
     Indication: Short stature
     Dosage: 0.14 ML, QD (ONCE DAILY)(5.8 MG VIAL) STRENGTH: 5 MG/ML
     Route: 058
  2. OMNITROPE [Suspect]
     Active Substance: SOMATROPIN
     Indication: Short stature
     Dosage: 0.14 ML, QD (ONCE DAILY)(5.8 MG VIAL) STRENGTH: 5 MG/ML
     Route: 058
  3. OMNITROPE [Suspect]
     Active Substance: SOMATROPIN
     Dosage: UNK, QD
     Route: 065
     Dates: start: 20250506
  4. OMNITROPE [Suspect]
     Active Substance: SOMATROPIN
     Dosage: UNK, QD
     Route: 065
     Dates: start: 20250506

REACTIONS (5)
  - Fear of injection [Recovering/Resolving]
  - Injection site pain [Unknown]
  - Liquid product physical issue [Unknown]
  - Drug dose omission by device [Unknown]
  - Device breakage [Unknown]

NARRATIVE: CASE EVENT DATE: 20250506
